FAERS Safety Report 4698385-4 (Version None)
Quarter: 2005Q2

REPORT INFORMATION
  Report Type: 
  Country: None (occurrence: None)
  Receive Date: 20050623
  Receipt Date: 20050620
  Transmission Date: 20051028
  Serious: Yes (Death)
  Sender: FDA-Public Use
  Company Number: 200511811JP

PATIENT
  Age: 53 Year
  Sex: Female

DRUGS (2)
  1. TAXOTERE [Suspect]
     Indication: BREAST CANCER RECURRENT
     Route: 041
     Dates: start: 20050617, end: 20050617
  2. DECADRON [Concomitant]
     Dates: start: 20050617, end: 20050617

REACTIONS (2)
  - BLOOD PRESSURE DECREASED [None]
  - SHOCK [None]
